FAERS Safety Report 10978232 (Version 1)
Quarter: 2015Q1

REPORT INFORMATION
  Report Type: Spontaneous
  Country: US (occurrence: None)
  Receive Date: 20150226
  Receipt Date: 20150226
  Transmission Date: 20150721
  Serious: No
  Sender: FDA-Public Use
  Company Number: TPA2009A02460

PATIENT
  Sex: Male

DRUGS (2)
  1. UNKNOWN BLOOD PRESSURE MEDICATION (ALL OTHER THERAPEUTIC PRODUCTS) [Concomitant]
  2. ULORIC [Suspect]
     Active Substance: FEBUXOSTAT
     Indication: GOUT
     Dates: start: 2009, end: 2009

REACTIONS (3)
  - Dizziness [None]
  - Rash maculo-papular [None]
  - Palpitations [None]

NARRATIVE: CASE EVENT DATE: 2009
